FAERS Safety Report 8102923-9 (Version None)
Quarter: 2012Q1

REPORT INFORMATION
  Report Type: 
  Country: None (occurrence: None)
  Receive Date: 20120201
  Receipt Date: 20120119
  Transmission Date: 20120608
  Serious: Yes (Hospitalization, Other)
  Sender: FDA-Public Use
  Company Number: US-COVIDIEN/TYCO HEALTHCARE/MALLINCKRODT-T201200462

PATIENT
  Age: 60 Year
  Sex: Male

DRUGS (1)
  1. METHADOSE [Suspect]
     Indication: DRUG WITHDRAWAL MAINTENANCE THERAPY

REACTIONS (3)
  - TOXICITY TO VARIOUS AGENTS [None]
  - DRUG WITHDRAWAL SYNDROME [None]
  - STRESS CARDIOMYOPATHY [None]
